FAERS Safety Report 15084537 (Version 2)
Quarter: 2019Q2

REPORT INFORMATION
  Report Type: Spontaneous
  Country: FR (occurrence: FR)
  Receive Date: 20180628
  Receipt Date: 20190429
  Transmission Date: 20190711
  Serious: Yes (Hospitalization)
  Sender: FDA-Public Use
  Company Number: FR-TEVA-2018-FR-918283

PATIENT
  Age: 87 Year
  Sex: Female
  Weight: 50 kg

DRUGS (9)
  1. KARDEGIC [Concomitant]
     Active Substance: ASPIRIN DL-LYSINE
     Route: 065
  2. DAFALGAN [Concomitant]
     Active Substance: ACETAMINOPHEN
     Route: 065
  3. ZYMAD [Concomitant]
     Active Substance: CHOLECALCIFEROL
     Route: 065
  4. BISOPROLOL TEVA [Suspect]
     Active Substance: BISOPROLOL
     Indication: PRODUCT USED FOR UNKNOWN INDICATION
     Dosage: 1.25 MILLIGRAM DAILY;
     Route: 048
     Dates: end: 20180323
  5. DICLOFENAC BGR 1 %, GEL [Concomitant]
     Route: 065
  6. TARDYFERON [Concomitant]
     Active Substance: FERROUS SULFATE
     Route: 065
  7. LECTIL 24 MG, COMPRIM? [Concomitant]
     Active Substance: BETAHISTINE HYDROCHLORIDE
     Route: 065
  8. RAMIPRIL ALMUS 1,25 MG, COMPRIM? [Concomitant]
     Route: 065
  9. ACIDE FOLIQUE CCD 0,4 MG, COMPRIM? [Concomitant]
     Route: 065

REACTIONS (2)
  - Raynaud^s phenomenon [Recovering/Resolving]
  - Scleroderma [Recovering/Resolving]

NARRATIVE: CASE EVENT DATE: 201803
